FAERS Safety Report 7910118-4 (Version None)
Quarter: 2011Q4

REPORT INFORMATION
  Report Type: 
  Country: None (occurrence: None)
  Receive Date: 20111111
  Receipt Date: 20111107
  Transmission Date: 20120403
  Serious: Yes (Hospitalization)
  Sender: FDA-Public Use
  Company Number: CHPA2011JP015751

PATIENT
  Sex: Female

DRUGS (2)
  1. NICOTINE [Suspect]
     Indication: SMOKING CESSATION THERAPY
     Dosage: UNK, UNK
     Route: 048
  2. NICOTINE [Suspect]
     Indication: SMOKING CESSATION THERAPY
     Dosage: UNK, UNK
     Route: 062

REACTIONS (5)
  - OVERDOSE [None]
  - GASTRIC ULCER [None]
  - ABDOMINAL DISCOMFORT [None]
  - TREATMENT NONCOMPLIANCE [None]
  - HYPERTENSION [None]
